FAERS Safety Report 9781739 (Version 2)
Quarter: 2016Q3

REPORT INFORMATION
  Report Type: Report from Study
  Country: GB (occurrence: GB)
  Receive Date: 20131224
  Receipt Date: 20160826
  Transmission Date: 20161109
  Serious: Yes (Other)
  Sender: FDA-Public Use
  Company Number: GB-ROCHE-1325066

PATIENT
  Age: 62 Year
  Sex: Female

DRUGS (11)
  1. GEMCITABINE HYDROCHLORIDE. [Suspect]
     Active Substance: GEMCITABINE HYDROCHLORIDE
     Indication: PANCREATIC CARCINOMA
     Dosage: OVER 30 MINUTES ON DAYS 1, 8 AND 15
     Route: 042
  2. CAPECITABINE. [Suspect]
     Active Substance: CAPECITABINE
     Indication: PANCREATIC CARCINOMA
     Dosage: TWICE DAILY ON DAYS 1-21
     Route: 048
  3. CLEXANE [Concomitant]
     Active Substance: ENOXAPARIN SODIUM
  4. SARGRAMOSTIM [Suspect]
     Active Substance: SARGRAMOSTIM
     Indication: PANCREATIC CARCINOMA
     Dosage: ON DAYS 1, 3 AND 5 IN WEEK 9, ONCE A WEEK IN WEEKS 10-12 AND 14
     Route: 023
  5. DICLOFENAC [Concomitant]
     Active Substance: DICLOFENAC
  6. PARACETAMOL [Concomitant]
     Active Substance: ACETAMINOPHEN
  7. OMEPRAZOLE. [Concomitant]
     Active Substance: OMEPRAZOLE
  8. ORAMORPH [Concomitant]
     Active Substance: MORPHINE SULFATE
  9. DEXAMETHASONE. [Concomitant]
     Active Substance: DEXAMETHASONE
  10. DUROGESIC [Concomitant]
     Active Substance: FENTANYL
  11. CODEINE [Concomitant]
     Active Substance: CODEINE

REACTIONS (1)
  - Chest discomfort [Recovered/Resolved]

NARRATIVE: CASE EVENT DATE: 20081203
